FAERS Safety Report 18036926 (Version 1)
Quarter: 2020Q3

REPORT INFORMATION
  Report Type: Other
  Country: GB (occurrence: GB)
  Receive Date: 20200717
  Receipt Date: 20200717
  Transmission Date: 20201103
  Serious: Yes (Disabling, Other)
  Sender: FDA-Public Use
  Company Number: GB-LUPIN PHARMACEUTICALS INC.-2020-03352

PATIENT
  Age: 46 Year
  Sex: Female
  Weight: 77 kg

DRUGS (8)
  1. CASSIA ACUTIFOLIA [Concomitant]
     Indication: FUNCTIONAL GASTROINTESTINAL DISORDER
     Dosage: 1 DOSAGE FORM, QD
     Route: 065
  2. ACETYLSALICYLIC ACID [Concomitant]
     Active Substance: ASPIRIN
     Indication: PRODUCT USED FOR UNKNOWN INDICATION
     Dosage: UNK
     Route: 065
  3. BISOPROLOL [Concomitant]
     Active Substance: BISOPROLOL
     Indication: PRODUCT USED FOR UNKNOWN INDICATION
     Dosage: UNK
     Route: 065
  4. LIPITOR [Concomitant]
     Active Substance: ATORVASTATIN CALCIUM
     Indication: PRODUCT USED FOR UNKNOWN INDICATION
     Dosage: UNK
     Route: 065
  5. LANSOPRAZOLE. [Suspect]
     Active Substance: LANSOPRAZOLE
     Indication: GASTROOESOPHAGEAL REFLUX DISEASE
     Dosage: 30 MILLIGRAM
     Route: 048
     Dates: start: 20200122, end: 20200627
  6. CLOPIDOGREL HYDROGEN SULFATE [Concomitant]
     Active Substance: CLOPIDOGREL BISULFATE
     Indication: PRODUCT USED FOR UNKNOWN INDICATION
     Dosage: UNK
     Route: 065
  7. RANOLAZINE. [Suspect]
     Active Substance: RANOLAZINE
     Indication: ANGINA PECTORIS
     Dosage: 750 MILLIGRAM, QD
     Route: 065
     Dates: start: 20200312, end: 20200408
  8. PERINDOPRIL [Concomitant]
     Active Substance: PERINDOPRIL
     Indication: PRODUCT USED FOR UNKNOWN INDICATION
     Dosage: UNK
     Route: 065

REACTIONS (16)
  - Pelvic pain [Recovering/Resolving]
  - Abdominal distension [Recovering/Resolving]
  - Constipation [Recovering/Resolving]
  - Hyperphosphataemia [Recovering/Resolving]
  - Pelvic inflammatory disease [Recovering/Resolving]
  - Urinary retention [Recovering/Resolving]
  - Urinary tract infection [Recovering/Resolving]
  - Anal fissure [Recovering/Resolving]
  - Blood thyroid stimulating hormone increased [Unknown]
  - Ileus paralytic [Recovering/Resolving]
  - Gastrointestinal sounds abnormal [Recovering/Resolving]
  - Urinary straining [Recovering/Resolving]
  - Haemorrhoids [Recovering/Resolving]
  - Functional gastrointestinal disorder [Recovering/Resolving]
  - Hypomagnesaemia [Recovering/Resolving]
  - Abdominal pain [Recovering/Resolving]

NARRATIVE: CASE EVENT DATE: 20200320
